FAERS Safety Report 5114145-4 (Version None)
Quarter: 2006Q3

REPORT INFORMATION
  Report Type: 
  Country: None (occurrence: None)
  Receive Date: 20060920
  Receipt Date: 20060904
  Transmission Date: 20061208
  Serious: Yes (Hospitalization)
  Sender: FDA-Public Use
  Company Number: 2006JP002844

PATIENT
  Age: 80 Year
  Sex: Female

DRUGS (7)
  1. VESICARE [Suspect]
     Indication: HYPERTONIC BLADDER
     Dosage: 5 MG, ORAL; SEE IMAGE
     Route: 048
     Dates: start: 20060622, end: 20060705
  2. VESICARE [Suspect]
     Indication: HYPERTONIC BLADDER
     Dosage: 5 MG, ORAL; SEE IMAGE
     Route: 048
     Dates: start: 20060706, end: 20060802
  3. PRIMPERAN ELIXIR [Concomitant]
  4. LANSOPRAZOLE [Concomitant]
  5. OMEPRAZOLE [Concomitant]
  6. SMP (SODIUM BICARBONATE, SCOPOLIACARNIOLICA EXTRACT, GENTIANA LUTEA RO [Concomitant]
  7. GASMOTIN (MOSAPRIDE CITRATE) [Concomitant]

REACTIONS (1)
  - HYPERKALAEMIA [None]
